FAERS Safety Report 12859821 (Version 1)
Quarter: 2016Q4

REPORT INFORMATION
  Report Type: Report from Study
  Country: FR (occurrence: FR)
  Receive Date: 20161018
  Receipt Date: 20161018
  Transmission Date: 20170207
  Serious: Yes (Death, Other)
  Sender: FDA-Public Use
  Company Number: PHHO2014FR020337

PATIENT
  Age: 69 Year
  Sex: Male
  Weight: 67 kg

DRUGS (1)
  1. PAZOPANIB [Suspect]
     Active Substance: PAZOPANIB
     Indication: SALIVARY GLAND CANCER
     Dosage: 800 MG, UNK (CUMULATIVE DOSE 17600 MG)
     Route: 048
     Dates: start: 20140214, end: 20140307

REACTIONS (2)
  - Left ventricular dysfunction [Not Recovered/Not Resolved]
  - Malignant neoplasm progression [Fatal]

NARRATIVE: CASE EVENT DATE: 20140307
